FAERS Safety Report 9319907 (Version 1)
Quarter: 2013Q2

REPORT INFORMATION
  Report Type: Spontaneous
  Country: US (occurrence: US)
  Receive Date: 20130530
  Receipt Date: 20130530
  Transmission Date: 20140414
  Serious: No
  Sender: FDA-Public Use
  Company Number: US-ASTRAZENECA-2013SE35436

PATIENT
  Age: 64 Year
  Sex: Female
  Weight: 102.5 kg

DRUGS (7)
  1. PULMICORT RESPULES [Suspect]
     Indication: SINUSITIS
     Route: 045
     Dates: start: 20130504
  2. CRESTOR [Suspect]
     Indication: HYPERLIPIDAEMIA
     Route: 048
     Dates: start: 201304
  3. XYLATAN [Concomitant]
  4. AMLODIPINE [Concomitant]
  5. PREDNISONE [Concomitant]
     Indication: SINUSITIS
  6. METFORMIN [Concomitant]
  7. NEOMED [Concomitant]
     Indication: SINUS DISORDER

REACTIONS (5)
  - Blood glucose increased [Not Recovered/Not Resolved]
  - Intentional drug misuse [Unknown]
  - Intentional drug misuse [Unknown]
  - Intentional drug misuse [Unknown]
  - Off label use [Unknown]
